FAERS Safety Report 7988880-4 (Version None)
Quarter: 2011Q4

REPORT INFORMATION
  Report Type: 
  Country: None (occurrence: None)
  Receive Date: 20111215
  Receipt Date: 20111215
  Transmission Date: 20120403
  Serious: No
  Sender: FDA-Public Use
  Company Number: None

PATIENT
  Age: 76 Year
  Sex: Male
  Weight: 99.7913 kg

DRUGS (1)
  1. DEXILANT [Suspect]
     Indication: GASTROOESOPHAGEAL REFLUX DISEASE
     Dosage: 60MG DELAYED RELEASE 1X/DAY MOUTH
     Route: 048
     Dates: start: 20100201, end: 20111001

REACTIONS (10)
  - HEADACHE [None]
  - DIZZINESS [None]
  - ABDOMINAL PAIN UPPER [None]
  - FLATULENCE [None]
  - INSOMNIA [None]
  - ABDOMINAL DISCOMFORT [None]
  - ASTHENIA [None]
  - MUSCLE SPASMS [None]
  - CHILLS [None]
  - GASTRIC POLYPS [None]
